FAERS Safety Report 16130394 (Version 1)
Quarter: 2019Q1

REPORT INFORMATION
  Report Type: Spontaneous
  Country: None (occurrence: US)
  Receive Date: 20190328
  Receipt Date: 20190328
  Transmission Date: 20190418
  Serious: No
  Sender: FDA-Public Use
  Company Number: US-AKRON, INC.-2064864

PATIENT
  Age: 64 Year
  Sex: Female

DRUGS (1)
  1. ZIOPTAN [Suspect]
     Active Substance: TAFLUPROST
     Route: 047

REACTIONS (9)
  - Headache [Recovering/Resolving]
  - Dry eye [Recovering/Resolving]
  - Ocular hyperaemia [None]
  - Vision blurred [Recovering/Resolving]
  - Rash [Recovering/Resolving]
  - Eye discharge [Recovering/Resolving]
  - Paranasal sinus discomfort [Recovering/Resolving]
  - Nasopharyngitis [Recovering/Resolving]
  - Eye irritation [Recovering/Resolving]
